FAERS Safety Report 9476095 (Version 2)
Quarter: 2013Q3

REPORT INFORMATION
  Report Type: Spontaneous
  Country: CO (occurrence: CO)
  Receive Date: 20130826
  Receipt Date: 20130905
  Transmission Date: 20140515
  Serious: Yes (Hospitalization)
  Sender: FDA-Public Use
  Company Number: CO-009507513-1308COL011135

PATIENT
  Age: 65 Year
  Sex: Female
  Weight: 50 kg

DRUGS (3)
  1. PEG-INTRON [Suspect]
     Indication: HEPATITIS C
     Dosage: REDIPEN, QW; FORMULATION: PREFILLED PENS, TOTAL DAILY DOSE: NOT APPLICABLE
     Route: 058
     Dates: start: 20130724
  2. REBETOL [Suspect]
     Indication: HEPATITIS C
     Dosage: UNK, QD
     Route: 048
     Dates: start: 20130724
  3. VICTRELIS [Suspect]
     Indication: HEPATITIS C
     Dosage: UNK UNK, QD
     Route: 048

REACTIONS (2)
  - Blood bilirubin increased [Unknown]
  - Transaminases increased [Unknown]
